FAERS Safety Report 8921198 (Version 1)
Quarter: 2012Q4

REPORT INFORMATION
  Report Type: 
  Country: CN (occurrence: CN)
  Receive Date: 20121121
  Receipt Date: 20121121
  Transmission Date: 20130627
  Serious: Yes (Hospitalization)
  Sender: FDA-Public Use
  Company Number: CN-BRISTOL-MYERS SQUIBB COMPANY-17146275

PATIENT
  Age: 53 Year
  Sex: Female

DRUGS (2)
  1. ABATACEPT [Suspect]
     Indication: RHEUMATOID ARTHRITIS
     Dates: start: 20090820
  2. METHOTREXATE [Concomitant]

REACTIONS (1)
  - Asthma [Recovered/Resolved]
